FAERS Safety Report 5261863-3 (Version None)
Quarter: 2007Q1

REPORT INFORMATION
  Report Type: 
  Country: None (occurrence: None)
  Receive Date: 20070310
  Receipt Date: 20070226
  Transmission Date: 20070707
  Serious: Yes (Hospitalization, Other)
  Sender: FDA-Public Use
  Company Number: PHEH2004US10614

PATIENT
  Age: 54 Year
  Weight: 90.702 kg

DRUGS (8)
  1. ESTRADERM [Suspect]
     Indication: MENOPAUSAL SYMPTOMS
     Dosage: UNK, UNK
     Route: 062
     Dates: start: 19960101, end: 20010101
  2. PREMARIN [Suspect]
     Indication: MENOPAUSAL SYMPTOMS
     Dosage: 0.625 MG, UNK
     Route: 062
     Dates: start: 19770101, end: 19960101
  3. PREMARIN [Suspect]
     Route: 062
  4. SYNTHROID [Concomitant]
  5. ADTZ [Concomitant]
     Indication: FLUID RETENTION
  6. PRINIVIL [Concomitant]
  7. CYTOXAN [Concomitant]
  8. LOTREL [Concomitant]

REACTIONS (27)
  - ABDOMINAL PAIN [None]
  - ARTHRALGIA [None]
  - BACK PAIN [None]
  - BREAST CANCER [None]
  - CHEMOTHERAPY MULTIPLE AGENTS SYSTEMIC [None]
  - CUSHINGOID [None]
  - DEHYDRATION [None]
  - DEPRESSION [None]
  - DIARRHOEA [None]
  - FALL [None]
  - HOT FLUSH [None]
  - HYPERTENSION [None]
  - HYPOAESTHESIA [None]
  - HYPOTHYROIDISM [None]
  - INSULIN-REQUIRING TYPE II DIABETES MELLITUS [None]
  - INTERVERTEBRAL DISC DEGENERATION [None]
  - MASS EXCISION [None]
  - MENTAL DISORDER [None]
  - MODIFIED RADICAL MASTECTOMY [None]
  - NEUROPATHY PERIPHERAL [None]
  - OBESITY [None]
  - OSTEOPENIA [None]
  - OSTEOPOROSIS [None]
  - PSYCHIATRIC SYMPTOM [None]
  - RADICULAR PAIN [None]
  - VOMITING [None]
  - X-RAY OF PELVIS AND HIP ABNORMAL [None]
